FAERS Safety Report 7775544-5 (Version None)
Quarter: 2011Q3

REPORT INFORMATION
  Report Type: 
  Country: None (occurrence: None)
  Receive Date: 20110923
  Receipt Date: 20110915
  Transmission Date: 20111222
  Serious: Yes (Hospitalization, Other)
  Sender: FDA-Public Use
  Company Number: US-JNJFOC-20110907523

PATIENT
  Sex: Female
  Weight: 13.6 kg

DRUGS (3)
  1. CORTIFOAM [Concomitant]
  2. REMICADE [Suspect]
     Indication: CROHN'S DISEASE
     Route: 042
     Dates: start: 20091019
  3. REMICADE [Suspect]
     Route: 042
     Dates: start: 20090915

REACTIONS (1)
  - CROHN'S DISEASE [None]
